FAERS Safety Report 5390384-2 (Version None)
Quarter: 2007Q3

REPORT INFORMATION
  Report Type: 
  Country: None (occurrence: None)
  Receive Date: 20070718
  Receipt Date: 20070706
  Transmission Date: 20080115
  Serious: Yes (Other)
  Sender: FDA-Public Use
  Company Number: US-PFIZER INC-2007056057

PATIENT
  Sex: Female
  Weight: 77 kg

DRUGS (3)
  1. DEPO-PROVERA SUSPENSION/INJ [Suspect]
     Indication: CONTRACEPTION
     Route: 030
     Dates: start: 20010701, end: 20010701
  2. DEPO-PROVERA SUSPENSION/INJ [Suspect]
     Route: 030
     Dates: start: 20070705, end: 20070705
  3. DEPO-PROVERA SUSPENSION/INJ [Suspect]
     Route: 030
     Dates: start: 20060101, end: 20060101

REACTIONS (6)
  - BIPOLAR DISORDER [None]
  - CONDITION AGGRAVATED [None]
  - DRUG EXPOSURE DURING PREGNANCY [None]
  - HEADACHE [None]
  - INCORRECT DRUG DOSAGE FORM ADMINISTERED [None]
  - PREGNANCY [None]
